FAERS Safety Report 13573376 (Version 2)
Quarter: 2017Q2

REPORT INFORMATION
  Report Type: Report from Study
  Country: CO (occurrence: CO)
  Receive Date: 20170523
  Receipt Date: 20170623
  Transmission Date: 20170830
  Serious: Yes (Disabling, Other)
  Sender: FDA-Public Use
  Company Number: CO-REGENERON PHARMACEUTICALS, INC.-2017-15971

PATIENT

DRUGS (2)
  1. EYLEA [Suspect]
     Active Substance: AFLIBERCEPT
     Dosage: 3 DF, Q1MON (HALF AND HALF IN EACH EYE)
     Dates: start: 201605, end: 201605
  2. EYLEA [Suspect]
     Active Substance: AFLIBERCEPT
     Indication: AGE-RELATED MACULAR DEGENERATION
     Dosage: 1 DF, Q1MON (3 INJECTION EACH MONTH FOR 3 MONTHS. THEN RECEIVED 1 ADMINISTRATION PER MONTH)
     Dates: start: 20150819

REACTIONS (1)
  - Blindness [Not Recovered/Not Resolved]

NARRATIVE: CASE EVENT DATE: 201608
